FAERS Safety Report 18816256 (Version 1)
Quarter: 2021Q1

REPORT INFORMATION
  Report Type: Spontaneous
  Country: US (occurrence: US)
  Receive Date: 20210201
  Receipt Date: 20210201
  Transmission Date: 20210419
  Serious: No
  Sender: FDA-Public Use
  Company Number: US-DRREDDYS-USA/USA/21/0131313

PATIENT
  Age: 46 Year
  Sex: Female

DRUGS (1)
  1. BUPRENORPHINE AND NALOXONE SUBLINGUAL FILM 4 MG/1 MG AND 12 MG/3 MG [Suspect]
     Active Substance: BUPRENORPHINE\NALOXONE
     Indication: PRODUCT USED FOR UNKNOWN INDICATION
     Route: 060

REACTIONS (7)
  - Withdrawal syndrome [Unknown]
  - Urticaria [Unknown]
  - Drug ineffective [Unknown]
  - Restless legs syndrome [Unknown]
  - Headache [Unknown]
  - Nausea [Unknown]
  - Product quality issue [Unknown]
